FAERS Safety Report 6028936-9 (Version None)
Quarter: 2008Q4

REPORT INFORMATION
  Report Type: 
  Country: None (occurrence: None)
  Receive Date: 20081222
  Receipt Date: 20081103
  Transmission Date: 20090506
  Serious: No
  Sender: FDA-Public Use
  Company Number: ALL1-2008-03201

PATIENT
  Age: 6 Year
  Sex: Male
  Weight: 20.9 kg

DRUGS (2)
  1. VYVANSE [Suspect]
     Indication: ATTENTION DEFICIT/HYPERACTIVITY DISORDER
     Dosage: 20 MG, 1X/DAY:QD, ORAL
     Route: 048
     Dates: start: 20081103, end: 20081103
  2. TRIAMINIC-12 [Concomitant]

REACTIONS (4)
  - EXPRESSIVE LANGUAGE DISORDER [None]
  - LOGORRHOEA [None]
  - PARKINSONIAN REST TREMOR [None]
  - TINNITUS [None]
